FAERS Safety Report 15986901 (Version 5)
Quarter: 2019Q3

REPORT INFORMATION
  Report Type: Report from Study
  Country: EC (occurrence: EC)
  Receive Date: 20190220
  Receipt Date: 20190821
  Transmission Date: 20191004
  Serious: Yes (Hospitalization)
  Sender: FDA-Public Use
  Company Number: PHHY2019EC039742

PATIENT
  Age: 67 Year
  Sex: Female
  Weight: 44 kg

DRUGS (3)
  1. TASIGNA [Suspect]
     Active Substance: NILOTINIB
     Dosage: 200 MG, (EVERY 48 HOURS)
     Route: 048
     Dates: start: 20190506
  2. TASIGNA [Suspect]
     Active Substance: NILOTINIB
     Indication: CHRONIC MYELOID LEUKAEMIA
     Dosage: 400 MG, BID
     Route: 048
     Dates: start: 20181105, end: 20190219
  3. TASIGNA [Suspect]
     Active Substance: NILOTINIB
     Dosage: 200 MG, QD
     Route: 048
     Dates: start: 20190429, end: 20190505

REACTIONS (10)
  - Drug intolerance [Unknown]
  - Decreased appetite [Unknown]
  - Rash [Recovered/Resolved]
  - Vomiting [Unknown]
  - Inappropriate schedule of product administration [Unknown]
  - Drug-induced liver injury [Recovering/Resolving]
  - Malnutrition [Unknown]
  - Asthenia [Recovering/Resolving]
  - Dyspepsia [Unknown]
  - Renal injury [Recovering/Resolving]

NARRATIVE: CASE EVENT DATE: 20181105
